FAERS Safety Report 10486830 (Version 6)
Quarter: 2015Q1

REPORT INFORMATION
  Report Type: Spontaneous
  Country: JP (occurrence: JP)
  Receive Date: 20141001
  Receipt Date: 20150105
  Transmission Date: 20150720
  Serious: Yes (Death, Hospitalization, Disabling)
  Sender: FDA-Public Use
  Company Number: JP-ASTELLAS-2014JP021885AA

PATIENT
  Age: 88 Year
  Sex: Male
  Weight: 48 kg

DRUGS (17)
  1. FENTOS [Concomitant]
     Active Substance: FENTANYL
     Indication: CANCER PAIN
     Route: 061
     Dates: start: 20140115, end: 20140506
  2. LYRICA [Concomitant]
     Active Substance: PREGABALIN
     Indication: CANCER PAIN
     Route: 048
     Dates: start: 20140312, end: 20140910
  3. AMLODIN [Concomitant]
     Active Substance: AMLODIPINE BESYLATE
     Indication: PRODUCT USED FOR UNKNOWN INDICATION
     Route: 048
  4. NORVASC [Concomitant]
     Active Substance: AMLODIPINE BESYLATE
     Indication: HYPERTENSION
     Route: 048
     Dates: end: 20140910
  5. DECADRON [Concomitant]
     Active Substance: DEXAMETHASONE
     Indication: HORMONE-REFRACTORY PROSTATE CANCER
     Dosage: 0.5 MG, TWICE DAILY
     Route: 048
     Dates: start: 20120118
  6. XTANDI [Suspect]
     Active Substance: ENZALUTAMIDE
     Indication: HORMONE-REFRACTORY PROSTATE CANCER
     Route: 048
     Dates: start: 20140813, end: 20140910
  7. LANTUS [Suspect]
     Active Substance: INSULIN GLARGINE
     Indication: PRODUCT USED FOR UNKNOWN INDICATION
     Route: 058
     Dates: end: 201408
  8. FENTOS [Concomitant]
     Active Substance: FENTANYL
     Route: 061
     Dates: start: 20140827
  9. MAGMITT [Concomitant]
     Active Substance: MAGNESIUM OXIDE
     Indication: PRODUCT USED FOR UNKNOWN INDICATION
     Route: 048
  10. AMARYL [Concomitant]
     Active Substance: GLIMEPIRIDE
     Indication: PRODUCT USED FOR UNKNOWN INDICATION
     Route: 048
  11. GLUFAST [Concomitant]
     Active Substance: MITIGLINIDE
     Indication: DIABETES MELLITUS
     Route: 048
     Dates: start: 20140813, end: 20140910
  12. LEUPLIN [Concomitant]
     Active Substance: LEUPROLIDE ACETATE
     Indication: HORMONE-REFRACTORY PROSTATE CANCER
     Route: 058
     Dates: start: 20040130, end: 20140924
  13. GASTER [Concomitant]
     Active Substance: FAMOTIDINE
     Indication: GASTRITIS PROPHYLAXIS
     Route: 048
     Dates: start: 20120118
  14. FENTOS [Concomitant]
     Active Substance: FENTANYL
     Route: 061
     Dates: start: 20140507, end: 20140826
  15. DECADRON [Concomitant]
     Active Substance: DEXAMETHASONE
     Dosage: 0.5 MG, TWICE DAILY ADMINISTRATION ROUTE: VIA TUBE
     Route: 050
  16. GASTER [Concomitant]
     Active Substance: FAMOTIDINE
     Dosage: 10 MG, TWICE DAILY ADMINISTRATION ROUTE: VIA TUBE
     Route: 050
  17. LAXOBERON [Concomitant]
     Active Substance: SODIUM PICOSULFATE
     Indication: PRODUCT USED FOR UNKNOWN INDICATION
     Route: 048

REACTIONS (4)
  - Decreased activity [Recovered/Resolved with Sequelae]
  - Decreased appetite [Recovered/Resolved with Sequelae]
  - Loss of consciousness [Recovering/Resolving]
  - Pneumonia aspiration [Fatal]

NARRATIVE: CASE EVENT DATE: 2014
